FAERS Safety Report 5607090-9 (Version None)
Quarter: 2008Q1

REPORT INFORMATION
  Report Type: 
  Country: None (occurrence: None)
  Receive Date: 20080129
  Receipt Date: 20080117
  Transmission Date: 20080703
  Serious: Yes (Hospitalization, Other)
  Sender: FDA-Public Use
  Company Number: FR-PFIZER INC-2007092382

PATIENT
  Sex: Male

DRUGS (1)
  1. CHANTIX [Suspect]
     Indication: SMOKING CESSATION THERAPY
     Dosage: DAILY DOSE:2MG
     Route: 048

REACTIONS (6)
  - COORDINATION ABNORMAL [None]
  - DYSARTHRIA [None]
  - DYSPHONIA [None]
  - NEOPLASM [None]
  - SPEECH DISORDER [None]
  - TREMOR [None]
